FAERS Safety Report 9948179 (Version 1)
Quarter: 2014Q1

REPORT INFORMATION
  Report Type: Report from Study
  Country: US (occurrence: US)
  Receive Date: 20140303
  Receipt Date: 20140303
  Transmission Date: 20141002
  Serious: No
  Sender: FDA-Public Use
  Company Number: US-ABBVIE-13P-163-1060857-00

PATIENT
  Sex: Male
  Weight: 103.51 kg

DRUGS (18)
  1. HUMIRA [Suspect]
     Indication: RHEUMATOID ARTHRITIS
     Dates: start: 2012
  2. HUMIRA [Suspect]
     Indication: RHEUMATOID ARTHRITIS
     Dates: start: 201110, end: 2012
  3. METFORMIN [Concomitant]
     Indication: DIABETES MELLITUS
  4. LIVALO [Concomitant]
     Indication: BLOOD CHOLESTEROL INCREASED
  5. LOVAZA [Concomitant]
     Indication: BLOOD TRIGLYCERIDES INCREASED
  6. PROPANOLOL [Concomitant]
     Indication: HYPERTENSION
  7. PROTONIX [Concomitant]
     Indication: GASTROOESOPHAGEAL REFLUX PROPHYLAXIS
  8. LYRICA [Concomitant]
     Indication: INFLAMMATION
  9. VICTOZA [Concomitant]
     Indication: DIABETES MELLITUS
  10. KLONOPIN [Concomitant]
     Indication: ANXIETY
  11. PERCOCET [Concomitant]
     Indication: OSTEOARTHRITIS
  12. CELEBREX [Concomitant]
     Indication: INFLAMMATION
  13. ZYPREXA [Concomitant]
     Indication: CONVULSION
  14. ZYPREXA [Concomitant]
     Indication: TRANSIENT ISCHAEMIC ATTACK
  15. VITAMIN B12 [Concomitant]
     Indication: VITAMIN SUPPLEMENTATION
  16. AMARYL [Concomitant]
     Indication: DIABETES MELLITUS
  17. VITAMIN B1 [Concomitant]
     Indication: VITAMIN SUPPLEMENTATION
  18. FOLIC ACID [Concomitant]
     Indication: VITAMIN SUPPLEMENTATION

REACTIONS (2)
  - Device malfunction [Recovered/Resolved]
  - Injection site pain [Not Recovered/Not Resolved]
